FAERS Safety Report 19469114 (Version 5)
Quarter: 2022Q2

REPORT INFORMATION
  Report Type: Report from Study
  Country: US (occurrence: US)
  Receive Date: 20210629
  Receipt Date: 20220606
  Transmission Date: 20220720
  Serious: Yes (Hospitalization)
  Sender: FDA-Public Use
  Company Number: US-AMGEN-USACT2021095718

PATIENT
  Age: 74 Year
  Sex: Female
  Weight: 54.6 kg

DRUGS (20)
  1. AMG-510 [Suspect]
     Active Substance: AMG-510
     Indication: K-ras gene mutation
     Dosage: 480 MILLIGRAM
     Route: 048
     Dates: start: 20210429
  2. AMG-510 [Suspect]
     Active Substance: AMG-510
     Indication: Non-small cell lung cancer stage IV
  3. METOPROLOL [Concomitant]
     Active Substance: METOPROLOL
     Dosage: 25 MILLIGRAM
     Route: 048
     Dates: start: 2016
  4. OMEPRAZOLE [Concomitant]
     Active Substance: OMEPRAZOLE
     Dosage: 10 MILLIGRAM
     Route: 048
     Dates: start: 2016
  5. OXYCODONE [Concomitant]
     Active Substance: OXYCODONE
     Dosage: 10-20 MILLIGRAM
     Route: 048
     Dates: start: 2019
  6. POTASSIUM CHLORIDE [Concomitant]
     Active Substance: POTASSIUM CHLORIDE
     Dosage: 20-40 MILLIEQUIVALENT
     Route: 048
     Dates: start: 2001, end: 20210622
  7. HERBALS\PLANTAGO INDICA WHOLE [Concomitant]
     Active Substance: HERBALS\PLANTAGO INDICA WHOLE
     Dosage: 0.4 GRAM
     Route: 048
     Dates: start: 20210325
  8. PROCHLORPERAZINE [Concomitant]
     Active Substance: PROCHLORPERAZINE
     Dosage: 1 UNK
     Route: 048
     Dates: start: 20200307
  9. METAMUCIL THERAPY FOR REGULARITY [Concomitant]
     Active Substance: PSYLLIUM HUSK
     Dosage: 1 UNK
     Route: 048
     Dates: start: 20210125
  10. CALCIUM [Concomitant]
     Active Substance: CALCIUM
     Dosage: 1 UNK
     Route: 048
     Dates: start: 20210505
  11. DEXAMETHASONE [Concomitant]
     Active Substance: DEXAMETHASONE
     Dosage: 2 MILLIGRAM
     Route: 048
     Dates: start: 20210506
  12. BACLOFEN [Concomitant]
     Active Substance: BACLOFEN
     Dosage: 10 MILLIGRAM
     Route: 048
     Dates: start: 2016
  13. LORAZEPAM [Concomitant]
     Active Substance: LORAZEPAM
     Dosage: 1 MILLIGRAM
     Route: 048
     Dates: start: 20210506
  14. IMODIUM [Concomitant]
     Active Substance: LOPERAMIDE HYDROCHLORIDE
     Dosage: 2 MILLIGRAM
     Route: 048
     Dates: start: 20210511
  15. ENTOCORT EC [Concomitant]
     Active Substance: BUDESONIDE
     Dosage: 3 MILLIGRAM
     Route: 048
     Dates: start: 2018
  16. TUMS [Concomitant]
     Active Substance: CALCIUM CARBONATE
     Dosage: 500 MILLIGRAM
     Route: 048
     Dates: start: 20210325
  17. CHOLECALCIFEROL [Concomitant]
     Active Substance: CHOLECALCIFEROL
     Dosage: 2000 UNK
     Route: 048
     Dates: start: 1990
  18. IBUPROFEN [Concomitant]
     Active Substance: IBUPROFEN
     Dosage: 600 MILLIGRAM
     Route: 048
     Dates: start: 20210325
  19. LOSARTAN [Concomitant]
     Active Substance: LOSARTAN
     Dosage: 100 MILLIGRAM
     Route: 048
     Dates: start: 2001
  20. MAGNESIUM OXIDE [Concomitant]
     Active Substance: MAGNESIUM OXIDE
     Dosage: 400 MILLIGRAM
     Route: 048
     Dates: start: 2005

REACTIONS (2)
  - Hypokalaemia [Recovered/Resolved]
  - Oedema peripheral [Recovered/Resolved]

NARRATIVE: CASE EVENT DATE: 20210618
